FAERS Safety Report 13144565 (Version 1)
Quarter: 2017Q1

REPORT INFORMATION
  Report Type: Spontaneous
  Country: US (occurrence: US)
  Receive Date: 20170124
  Receipt Date: 20170124
  Transmission Date: 20170428
  Serious: No
  Sender: FDA-Public Use
  Company Number: US-TEVA-678482USA

PATIENT
  Sex: Female
  Weight: 54.48 kg

DRUGS (1)
  1. FLUDROCORTISONE [Suspect]
     Active Substance: FLUDROCORTISONE

REACTIONS (1)
  - Abdominal pain upper [Unknown]
